FAERS Safety Report 8080250-6 (Version None)
Quarter: 2012Q1

REPORT INFORMATION
  Report Type: 
  Country: None (occurrence: None)
  Receive Date: 20120130
  Receipt Date: 20120124
  Transmission Date: 20120608
  Serious: Yes (Life-Threatening, Hospitalization)
  Sender: FDA-Public Use
  Company Number: NL-TEVA-319451ISR

PATIENT
  Sex: Male

DRUGS (5)
  1. VENLAFAXINE [Suspect]
  2. ATORVASTATIN [Suspect]
  3. METFFORMIN HYDROCHLORIDE [Suspect]
  4. CARVEDILOL [Suspect]
  5. INSULIN [Suspect]

REACTIONS (2)
  - OVERDOSE [None]
  - MUSCLE RIGIDITY [None]
